FAERS Safety Report 6505224-5 (Version None)
Quarter: 2009Q4

REPORT INFORMATION
  Report Type: 
  Country: None (occurrence: None)
  Receive Date: 20091216
  Receipt Date: 20091202
  Transmission Date: 20100525
  Serious: Yes (Hospitalization)
  Sender: FDA-Public Use
  Company Number: 220001J07ESP

PATIENT
  Age: 12 Year
  Sex: Female

DRUGS (2)
  1. SAIZEN [ (SOMATROPIN  (RDNA ORIGIN) FOR INJECTION ) ]  FOR INJECTION) [Suspect]
     Indication: BLOOD GROWTH HORMONE DECREASED
     Dosage: 1.07 MG, 1 IN 1 DAYS, SUBCUTANEOUS; 0.8 MG, 1 IN 1 DAYS, SUBCUTANEOUS
     Route: 058
     Dates: start: 20070501, end: 20070901
  2. SAIZEN [ (SOMATROPIN  (RDNA ORIGIN) FOR INJECTION ) ]  FOR INJECTION) [Suspect]
     Indication: BLOOD GROWTH HORMONE DECREASED
     Dosage: 1.07 MG, 1 IN 1 DAYS, SUBCUTANEOUS; 0.8 MG, 1 IN 1 DAYS, SUBCUTANEOUS
     Route: 058
     Dates: start: 20071101

REACTIONS (2)
  - ENCEPHALITIS VIRAL [None]
  - HEADACHE [None]
